FAERS Safety Report 4379740-9 (Version None)
Quarter: 2004Q2

REPORT INFORMATION
  Report Type: 
  Country: None (occurrence: None)
  Receive Date: 20040617
  Receipt Date: 20040607
  Transmission Date: 20050107
  Serious: Yes (Hospitalization)
  Sender: FDA-Public Use
  Company Number: GB-GLAXOSMITHKLINE-B0335046A

PATIENT
  Sex: Female
  Weight: 85 kg

DRUGS (19)
  1. PAROXETINE HCL [Suspect]
     Indication: DEPRESSION
     Dosage: 20MG PER DAY
     Route: 065
  2. QUETIAPINE [Suspect]
     Indication: ABNORMAL BEHAVIOUR
     Dosage: 25MG TWICE PER DAY
     Route: 065
     Dates: start: 20040501
  3. GLICLAZIDE [Suspect]
     Indication: DIABETES MELLITUS NON-INSULIN-DEPENDENT
     Dosage: 80MG TWICE PER DAY
     Route: 065
  4. IBUPROFEN [Concomitant]
     Dosage: 400MG THREE TIMES PER DAY
     Route: 065
  5. LOPERAMIDE HCL [Concomitant]
     Dosage: 2MG AS REQUIRED
     Route: 065
  6. WHITE SOFT PARAFFIN [Concomitant]
     Route: 065
  7. LIQUID PARAFFIN [Concomitant]
     Route: 065
  8. TRIMOVATE [Concomitant]
     Route: 061
  9. VOLTAREN [Concomitant]
     Route: 061
  10. CHLORPHENIRAMINE MALEATE [Concomitant]
     Dosage: 4MG TWICE PER DAY
     Route: 065
  11. CALAMINE [Concomitant]
     Route: 065
  12. ASCORBIC ACID [Concomitant]
     Dosage: 500MG PER DAY
     Route: 065
  13. ZINC SULPHATE [Concomitant]
     Dosage: 125MG TWICE PER DAY
     Route: 065
  14. GLICLAZIDE [Concomitant]
     Dosage: 80MG TWICE PER DAY
     Route: 065
  15. FUROSEMIDE [Concomitant]
     Dosage: 40MG TWICE PER DAY
     Route: 065
  16. ACETAMINOPHEN [Concomitant]
     Dosage: 500MG FOUR TIMES PER DAY
     Route: 065
  17. ALLOPURINOL [Concomitant]
     Dosage: 100MG PER DAY
     Route: 065
  18. AQUEOUS CREAM BP [Concomitant]
     Route: 061
  19. CARMELLOSE SODIUM [Concomitant]
     Dosage: 1DROP AS DIRECTED
     Route: 047

REACTIONS (2)
  - DRUG INTERACTION [None]
  - HYPOGLYCAEMIA [None]
